FAERS Safety Report 13757423 (Version 1)
Quarter: 2017Q3

REPORT INFORMATION
  Report Type: Spontaneous
  Country: US (occurrence: US)
  Receive Date: 20170716
  Receipt Date: 20170716
  Transmission Date: 20171127
  Serious: No
  Sender: FDA-Public Use
  Company Number: PHEH2017US021521

PATIENT
  Sex: Female

DRUGS (2)
  1. GLEEVEC [Suspect]
     Active Substance: IMATINIB MESYLATE
     Dosage: 400 MG (TAKING IT FOR 5 DAYS TOTAL INCLUDING THREE DAYS ON AND TWO DAYS OFF KIND OF PROGRAM)
     Route: 065
  2. GLEEVEC [Suspect]
     Active Substance: IMATINIB MESYLATE
     Indication: PRODUCT USED FOR UNKNOWN INDICATION
     Dosage: 400 MG, UNK
     Route: 065

REACTIONS (5)
  - Rash generalised [Unknown]
  - Urticaria [Unknown]
  - Alopecia [Unknown]
  - Rash [Unknown]
  - Skin exfoliation [Unknown]
